FAERS Safety Report 4731313-1 (Version None)
Quarter: 2005Q3

REPORT INFORMATION
  Report Type: 
  Country: None (occurrence: None)
  Receive Date: 20050729
  Receipt Date: 20050718
  Transmission Date: 20060218
  Serious: Yes (Other)
  Sender: FDA-Public Use
  Company Number: 2005102961

PATIENT
  Sex: Male
  Weight: 2.4862 kg

DRUGS (2)
  1. KAOPECTATE (BISMUTH SUBSALICYLATE) [Suspect]
     Indication: DIARRHOEA
     Dosage: 3 DOSES PER DAY, PLACENTAL
     Route: 064
     Dates: start: 20050201, end: 20050301
  2. PRENATAL VITAMINS (ASCORBIC ACID, BIOTIN, MINERALS NOS, NICOTINIC ACID [Concomitant]

REACTIONS (7)
  - DRUG EXPOSURE DURING PREGNANCY [None]
  - DYSPNOEA [None]
  - JAUNDICE NEONATAL [None]
  - MOVEMENT DISORDER [None]
  - NEONATAL DISORDER [None]
  - NERVE INJURY [None]
  - PREMATURE BABY [None]
